FAERS Safety Report 6028616-X (Version None)
Quarter: 2009Q1

REPORT INFORMATION
  Report Type: 
  Country: None (occurrence: None)
  Receive Date: 20090106
  Receipt Date: 20081230
  Transmission Date: 20090719
  Serious: Yes (Death)
  Sender: FDA-Public Use
  Company Number: CN-PFIZER INC-2008161039

PATIENT

DRUGS (6)
  1. SOLU-MEDROL [Suspect]
     Dosage: 80 MG, 1X/DAY
     Route: 042
     Dates: start: 20081224, end: 20081226
  2. METHYLPREDNISOLONE [Concomitant]
     Route: 048
     Dates: start: 20081227
  3. CEFOPERAZONE SODIUM [Concomitant]
     Dates: start: 20081201
  4. GATIFLOXACIN [Concomitant]
     Dates: start: 20081201
  5. CEFODIZIME DISODIUM [Concomitant]
     Dates: start: 20081201
  6. ETIMICIN [Concomitant]
     Dates: start: 20081201

REACTIONS (1)
  - COMPLETED SUICIDE [None]
